FAERS Safety Report 11615787 (Version 1)
Quarter: 2015Q4

REPORT INFORMATION
  Report Type: Spontaneous
  Country: US (occurrence: US)
  Receive Date: 20151009
  Receipt Date: 20151009
  Transmission Date: 20160304
  Serious: No
  Sender: FDA-Public Use
  Company Number: US-TEVA-598999ACC

PATIENT
  Sex: Female

DRUGS (1)
  1. PARAGARD T 380A [Suspect]
     Active Substance: COPPER
     Indication: CONTRACEPTION
     Dates: start: 20151001

REACTIONS (2)
  - Vaginal infection [Not Recovered/Not Resolved]
  - Vaginal inflammation [Not Recovered/Not Resolved]

NARRATIVE: CASE EVENT DATE: 20151001
